FAERS Safety Report 13557337 (Version 1)
Quarter: 2017Q2

REPORT INFORMATION
  Report Type: Spontaneous
  Country: US (occurrence: US)
  Receive Date: 20170517
  Receipt Date: 20170517
  Transmission Date: 20170830
  Serious: No
  Sender: FDA-Public Use
  Company Number: None

PATIENT
  Age: 46 Year
  Sex: Female

DRUGS (1)
  1. STELARA [Suspect]
     Active Substance: USTEKINUMAB
     Indication: PSORIASIS
     Dosage: 90MG Q12WEEKS SQ
     Route: 058
     Dates: start: 20170419

REACTIONS (2)
  - Fatigue [None]
  - Sinusitis [None]

NARRATIVE: CASE EVENT DATE: 20170517
